FAERS Safety Report 24546921 (Version 2)
Quarter: 2024Q4

REPORT INFORMATION
  Report Type: Spontaneous
  Country: US (occurrence: US)
  Receive Date: 20241024
  Receipt Date: 20241105
  Transmission Date: 20250114
  Serious: Yes (Death, Hospitalization, Other)
  Sender: PFIZER
  Company Number: US-PFIZER INC-PV202400128742

PATIENT
  Age: 82 Year
  Sex: Male
  Weight: 89.36 kg

DRUGS (2)
  1. VYNDAMAX [Suspect]
     Active Substance: TAFAMIDIS
     Indication: Cardiac disorder
     Dosage: 61 MG, 1X/DAY
     Route: 048
     Dates: start: 20220430
  2. VYNDAMAX [Suspect]
     Active Substance: TAFAMIDIS
     Indication: Amyloidosis

REACTIONS (7)
  - Cardiac disorder [Fatal]
  - Disease progression [Fatal]
  - Myocardial infarction [Fatal]
  - Renal impairment [Fatal]
  - Fluid retention [Unknown]
  - Ascites [Unknown]
  - Dyspnoea [Unknown]
